FAERS Safety Report 5863876-7 (Version None)
Quarter: 2008Q3

REPORT INFORMATION
  Report Type: 
  Country: None (occurrence: None)
  Receive Date: 20080827
  Receipt Date: 20080818
  Transmission Date: 20090109
  Serious: Yes (Hospitalization)
  Sender: FDA-Public Use
  Company Number: GXKR2008GB07793

PATIENT
  Age: 64 Year
  Sex: Male

DRUGS (17)
  1. BISOPROLOL FUMARATE [Suspect]
     Indication: HYPERTENSION
     Dosage: 2.5 MG, QD, ORAL
     Route: 048
     Dates: end: 20080717
  2. CEPHALEXIN [Suspect]
     Indication: URINARY TRACT INFECTION
     Dosage: 500 MG, TID, ORAL
     Route: 048
     Dates: start: 20080707, end: 20080714
  3. ALPHOSYL HC (ALLANTOIN, COAL TAR, PEPARED, HYDROCORTISONE) [Concomitant]
  4. ACETYLSALICYLIC ACID SRT [Concomitant]
  5. BETAMETHASONE (BETAMETHASONE) UNKNOWN [Concomitant]
  6. CALCIPOTRIOL (CALCIPOTRIOL) UNKNOWN [Concomitant]
  7. CETRIZINE (CETIRIZINE) UNKNOWN [Concomitant]
  8. DIPROBASE (CETOMACROGOL, CETOSTEARYL ALCOHOL, PARAFFIN, LIQUID, WHITE [Concomitant]
  9. HYDROCORTISONE (HYDROCORTISONE) UNKNOWN [Concomitant]
  10. ISPAGHULA (ISPAGHULA, PLANTAGO OVATA) UNKNOWN [Concomitant]
  11. MACROGOL (MACROGOL) UNKNOWN [Concomitant]
  12. MANEVAC (ISPAGHULA, PLANTAGO OVATA, SENNA, SENNA ALEXANDRINA) UNKNOWN [Concomitant]
  13. MICONAZOLE (MICONAZOLE) UNKNOWN [Concomitant]
  14. PRAGMATAR (CETYL ALCOHOL, COAL TAR, SALICYLIC ACID, SULFUR) UNKNOWN [Concomitant]
  15. SIMVASTATIN [Concomitant]
  16. TOLTERODINE (TOLTERODINE) UNKNOWN [Concomitant]
  17. ZOPICLONE (ZOPICLONE) UNKNOWN [Concomitant]

REACTIONS (2)
  - LOSS OF CONSCIOUSNESS [None]
  - RASH PRURITIC [None]
